FAERS Safety Report 21363648 (Version 2)
Quarter: 2022Q4

REPORT INFORMATION
  Report Type: Spontaneous
  Country: US (occurrence: US)
  Receive Date: 20220922
  Receipt Date: 20221103
  Transmission Date: 20230112
  Serious: No
  Sender: FDA-Public Use
  Company Number: US-PFIZER INC-202201110341

PATIENT
  Age: 10 Year
  Sex: Female

DRUGS (5)
  1. GENOTROPIN [Suspect]
     Active Substance: SOMATROPIN
     Indication: Blood growth hormone
     Dosage: TECHNICALLY 1.2MG; SINCE PEN ONLY IN INCREMENTS OF 0.1MG, GETS 1.0MG ONE NIGHT AND 1.2MG NEXT NIGHT)
  2. GENOTROPIN [Suspect]
     Active Substance: SOMATROPIN
     Dosage: UNK
  3. HYOSCYAMINE SULFATE [Concomitant]
     Active Substance: HYOSCYAMINE SULFATE
     Dosage: 0.125 MG, CYCLIC(0.125MG, ONE TABLET EVERY 6 TO 8 HOURS, BEFORE MEALS )
  4. LEVOTHYROXINE [Concomitant]
     Active Substance: LEVOTHYROXINE
     Indication: Thyroid disorder
     Dosage: 25 UG, 1X/DAY (ONE TABLET EVERY DAY)
  5. CLONIDINE HYDROCHLORIDE [Concomitant]
     Active Substance: CLONIDINE HYDROCHLORIDE
     Indication: Sleep disorder
     Dosage: 0.1 MG, 1X/DAY (ONE HALF TABLET DAILY AT BEDTIME)

REACTIONS (4)
  - Drug dose omission by device [Unknown]
  - Device use issue [Unknown]
  - Device breakage [Unknown]
  - Off label use of device [Unknown]
